FAERS Safety Report 11545454 (Version 3)
Quarter: 2015Q4

REPORT INFORMATION
  Report Type: Spontaneous
  Country: NL (occurrence: NL)
  Receive Date: 20150924
  Receipt Date: 20151001
  Transmission Date: 20160304
  Serious: Yes (Hospitalization)
  Sender: FDA-Public Use
  Company Number: NL-BAYER-2015-422434

PATIENT
  Age: 60 Year
  Sex: Male

DRUGS (1)
  1. GADOVIST 1,0 MMOL/ML [Suspect]
     Active Substance: GADOBUTROL
     Indication: NUCLEAR MAGNETIC RESONANCE IMAGING THORACIC
     Dosage: 16 ML, ONCE
     Route: 042
     Dates: start: 20150911, end: 20150911

REACTIONS (7)
  - Feeling hot [Recovered/Resolved]
  - Fatigue [None]
  - Cold sweat [Recovered/Resolved]
  - Pruritus [Recovered/Resolved]
  - Depressed level of consciousness [Recovered/Resolved]
  - Malaise [Recovered/Resolved]
  - Pallor [Recovered/Resolved]

NARRATIVE: CASE EVENT DATE: 20150911
